FAERS Safety Report 6974539-9 (Version None)
Quarter: 2010Q3

REPORT INFORMATION
  Report Type: 
  Country: None (occurrence: None)
  Receive Date: 20100909
  Receipt Date: 20080819
  Transmission Date: 20110219
  Serious: Yes (Hospitalization)
  Sender: FDA-Public Use
  Company Number: US-WYE-H05643508

PATIENT
  Age: 87 Year
  Sex: Female

DRUGS (3)
  1. PROTONIX [Suspect]
     Dosage: UNKNOWN
     Dates: start: 20080707, end: 20080716
  2. FLOMAX [Suspect]
     Indication: URINARY RETENTION
     Route: 048
     Dates: start: 20080707
  3. FLOMAX [Suspect]
     Indication: DYSURIA

REACTIONS (3)
  - CONDITION AGGRAVATED [None]
  - HALLUCINATION [None]
  - VERTIGO [None]
